FAERS Safety Report 5242502-4 (Version None)
Quarter: 2007Q1

REPORT INFORMATION
  Report Type: 
  Country: None (occurrence: None)
  Receive Date: 20070221
  Receipt Date: 20070207
  Transmission Date: 20070707
  Serious: Yes (Hospitalization)
  Sender: FDA-Public Use
  Company Number: US-AMGEN-STX210325

PATIENT
  Sex: Female

DRUGS (1)
  1. ENBREL [Suspect]
     Indication: RHEUMATOID ARTHRITIS
     Route: 058
     Dates: start: 20030401

REACTIONS (5)
  - BLOOD CREATININE INCREASED [None]
  - CATARACT [None]
  - FATIGUE [None]
  - PNEUMONIA [None]
  - RHEUMATOID ARTHRITIS [None]
